FAERS Safety Report 12139760 (Version 4)
Quarter: 2016Q2

REPORT INFORMATION
  Report Type: Spontaneous
  Country: US (occurrence: US)
  Receive Date: 20160303
  Receipt Date: 20160412
  Transmission Date: 20160815
  Serious: No
  Sender: FDA-Public Use
  Company Number: PHEH2016US004859

PATIENT
  Sex: Female

DRUGS (5)
  1. HYDROCHLOORTHIAZIDE [Concomitant]
     Active Substance: HYDROCHLOROTHIAZIDE
     Indication: PRODUCT USED FOR UNKNOWN INDICATION
     Dosage: UNK
     Route: 065
  2. WATER PILLS [Concomitant]
     Active Substance: UNSPECIFIED INGREDIENT
     Indication: PRODUCT USED FOR UNKNOWN INDICATION
     Dosage: 6 MG, UNK
     Route: 065
  3. ELIQUIS [Concomitant]
     Active Substance: APIXABAN
     Indication: PRODUCT USED FOR UNKNOWN INDICATION
     Dosage: 2.5 MG, UNK
     Route: 065
  4. METOPROLOL TARTRATE. [Concomitant]
     Active Substance: METOPROLOL TARTRATE
     Indication: PRODUCT USED FOR UNKNOWN INDICATION
     Dosage: 12.5 MG, UNK
     Route: 065
  5. TEKTURNA [Suspect]
     Active Substance: ALISKIREN HEMIFUMARATE
     Indication: PRODUCT USED FOR UNKNOWN INDICATION
     Dosage: 150 MG, (1TO2 EVERYDAY)
     Route: 065
     Dates: start: 20160204

REACTIONS (17)
  - Oropharyngeal pain [Unknown]
  - Oral mucosal blistering [Unknown]
  - Balance disorder [Unknown]
  - Back pain [Unknown]
  - Malaise [Unknown]
  - Bowel movement irregularity [Unknown]
  - Dizziness [Unknown]
  - Eye disorder [Unknown]
  - Hypoacusis [Unknown]
  - Blood pressure fluctuation [Recovering/Resolving]
  - Decreased appetite [Unknown]
  - Diarrhoea [Unknown]
  - Headache [Unknown]
  - Cough [Unknown]
  - Feeling abnormal [Unknown]
  - Abdominal pain [Unknown]
  - Weight decreased [Unknown]
